FAERS Safety Report 7827352-4 (Version None)
Quarter: 2011Q4

REPORT INFORMATION
  Report Type: 
  Country: None (occurrence: None)
  Receive Date: 20111019
  Receipt Date: 20111019
  Transmission Date: 20120403
  Serious: Yes (Hospitalization)
  Sender: FDA-Public Use
  Company Number: None

PATIENT
  Sex: Male
  Weight: 93 kg

DRUGS (1)
  1. CISPLATIN [Suspect]
     Dosage: 185 MG
     Dates: end: 20070904

REACTIONS (10)
  - MUCOSAL INFLAMMATION [None]
  - HYPERGLYCAEMIA [None]
  - LEUKOPENIA [None]
  - PAIN [None]
  - LYMPHOPENIA [None]
  - HYPONATRAEMIA [None]
  - HYPOCALCAEMIA [None]
  - RASH [None]
  - PYREXIA [None]
  - HYPOALBUMINAEMIA [None]
